FAERS Safety Report 6024183-5 (Version None)
Quarter: 2008Q4

REPORT INFORMATION
  Report Type: 
  Country: None (occurrence: None)
  Receive Date: 20081224
  Receipt Date: 20081212
  Transmission Date: 20090506
  Serious: Yes (Death, Hospitalization, Other)
  Sender: FDA-Public Use
  Company Number: KV200800985

PATIENT
  Age: 79 Year
  Sex: Female
  Weight: 81.6 kg

DRUGS (7)
  1. ISOSORBIDE MONONITRATE [Suspect]
     Indication: BLOOD PRESSURE INCREASED
     Dosage: 60 MG, QD AM, ORAL
     Route: 048
     Dates: end: 20080615
  2. CHOLESTEROL MEDICATION() [Suspect]
  3. METOPROLOL TARTRATE [Concomitant]
  4. DILTIAZEM [Concomitant]
  5. HYDROXYUREA [Concomitant]
  6. ALLOPURINOL [Concomitant]
  7. PARKINSON'S MEDICATION [Concomitant]

REACTIONS (7)
  - BLOOD PRESSURE DECREASED [None]
  - CHEST PAIN [None]
  - COMPRESSION FRACTURE [None]
  - DIZZINESS [None]
  - FALL [None]
  - LEUKAEMIA [None]
  - PRODUCT QUALITY ISSUE [None]
